FAERS Safety Report 7233842-8 (Version None)
Quarter: 2011Q1

REPORT INFORMATION
  Report Type: 
  Country: None (occurrence: None)
  Receive Date: 20110119
  Receipt Date: 20100204
  Transmission Date: 20110831
  Serious: No
  Sender: FDA-Public Use
  Company Number: US-TEVA-224358USA

PATIENT
  Sex: Female

DRUGS (4)
  1. BACLOFEN [Concomitant]
     Route: 048
  2. TIZANIDINE [Concomitant]
     Route: 048
  3. CLONAZEPAM [Concomitant]
     Route: 048
  4. COPAXONE [Suspect]
     Indication: MULTIPLE SCLEROSIS
     Route: 058
     Dates: start: 20080331, end: 20091020

REACTIONS (3)
  - INJECTION SITE HAEMATOMA [None]
  - MELANOSIS [None]
  - LEUKOPENIA [None]
